FAERS Safety Report 22385915 (Version 1)
Quarter: 2023Q2

REPORT INFORMATION
  Report Type: Spontaneous
  Country: AU (occurrence: AU)
  Receive Date: 20230530
  Receipt Date: 20230530
  Transmission Date: 20230722
  Serious: Yes (Death, Other)
  Sender: FDA-Public Use
  Company Number: AU-LUNDBECK-DKLU3062433

PATIENT
  Sex: Male

DRUGS (3)
  1. ESCITALOPRAM OXALATE [Suspect]
     Active Substance: ESCITALOPRAM OXALATE
     Indication: Bipolar disorder
     Dosage: 15 MG
     Dates: start: 201908, end: 20220722
  2. DULOXETINE HYDROCHLORIDE [Concomitant]
     Active Substance: DULOXETINE HYDROCHLORIDE
     Indication: Product used for unknown indication
  3. LITHIUM [Concomitant]
     Active Substance: LITHIUM
     Indication: Product used for unknown indication

REACTIONS (12)
  - Adverse event [Fatal]
  - Cerebrovascular accident [Unknown]
  - Haemorrhagic diathesis [Unknown]
  - Mood swings [Unknown]
  - Contusion [Unknown]
  - Hallucination [Unknown]
  - Panic attack [Unknown]
  - Anxiety [Unknown]
  - Confusional state [Unknown]
  - Somnolence [Unknown]
  - Rash [Unknown]
  - Product use in unapproved indication [Unknown]

NARRATIVE: CASE EVENT DATE: 20220722
